FAERS Safety Report 9501476 (Version 1)
Quarter: 2013Q3

REPORT INFORMATION
  Report Type: Report from Study
  Country: AU (occurrence: AU)
  Receive Date: 20130905
  Receipt Date: 20130905
  Transmission Date: 20140515
  Serious: Yes (Other)
  Sender: FDA-Public Use
  Company Number: AU-GLAXOSMITHKLINE-Z0016750A

PATIENT
  Age: 64 Year
  Sex: Male
  Weight: 88.7 kg

DRUGS (5)
  1. TRAMETINIB [Suspect]
     Indication: MALIGNANT MELANOMA
     Dosage: 2MG PER DAY
     Route: 048
     Dates: start: 20120712
  2. DABRAFENIB [Suspect]
     Indication: MALIGNANT MELANOMA
     Dosage: 150MG TWICE PER DAY
     Route: 048
     Dates: start: 20120712
  3. PANAMAX [Concomitant]
     Dosage: 1G THREE TIMES PER DAY
     Route: 048
     Dates: start: 20120717, end: 20121005
  4. PREDNISOLONE [Concomitant]
     Dosage: 15MG TWICE PER DAY
     Route: 048
     Dates: start: 20120823, end: 20120823
  5. PREDNISOLONE [Concomitant]
     Dosage: 25MG TWICE PER DAY
     Route: 048
     Dates: start: 20120824, end: 20121006

REACTIONS (1)
  - Pyrexia [Recovered/Resolved]
